FAERS Safety Report 9576859 (Version 1)
Quarter: 2013Q4

REPORT INFORMATION
  Report Type: Spontaneous
  Country: US (occurrence: US)
  Receive Date: 20131001
  Receipt Date: 20131001
  Transmission Date: 20140711
  Serious: No
  Sender: FDA-Public Use
  Company Number: US-AMGEN-USASP2013004940

PATIENT
  Age: 39 Year
  Sex: Female
  Weight: 90.7 kg

DRUGS (10)
  1. ENBREL [Suspect]
     Indication: PSORIATIC ARTHROPATHY
     Dosage: 50 MG, QWK
     Route: 058
  2. WELLBUTRIN [Concomitant]
     Indication: SMOKING CESSATION THERAPY
     Dosage: 150 MG,SR
  3. PREDNISONE [Concomitant]
     Dosage: 1 MG, UNK
  4. VICODIN [Concomitant]
     Dosage: 5 TO 500 MGUNK
  5. LISINOPRIL [Concomitant]
     Dosage: 2.5 MG, UNK
  6. IBUPROFEN [Concomitant]
     Dosage: 800 MG, UNK
  7. PREVACID [Concomitant]
     Dosage: 15 MG, DR
  8. VITAMIN C                          /00008001/ [Concomitant]
     Dosage: 500 MG, UNK
  9. MULTIVITAMIN                       /00097801/ [Concomitant]
     Dosage: UNK
  10. HUMIRA [Concomitant]
     Dosage: UNK
     Dates: start: 201106

REACTIONS (1)
  - Therapeutic response decreased [Unknown]
